FAERS Safety Report 10476087 (Version 7)
Quarter: 2017Q1

REPORT INFORMATION
  Report Type: Spontaneous
  Country: US (occurrence: US)
  Receive Date: 20140925
  Receipt Date: 20170310
  Transmission Date: 20170428
  Serious: Yes (Hospitalization, Other)
  Sender: FDA-Public Use
  Company Number: US-PFIZER INC-2014263313

PATIENT
  Age: 68 Year
  Sex: Male
  Weight: 67.12 kg

DRUGS (19)
  1. VIAGRA [Suspect]
     Active Substance: SILDENAFIL CITRATE
     Indication: ERECTILE DYSFUNCTION
     Dosage: 100 MG, 3 TO 4 TIMES A WEEK
     Route: 048
  2. VIAGRA [Suspect]
     Active Substance: SILDENAFIL CITRATE
     Dosage: 100 MG, 5 TIMES A MONTH
     Route: 048
  3. DIFLUCAN [Concomitant]
     Active Substance: FLUCONAZOLE
     Dosage: 200 MG, SINGLE (2 PILLS TODAY )
  4. OXYCONTIN [Concomitant]
     Active Substance: OXYCODONE HYDROCHLORIDE
     Dosage: 10 MG, 3X/DAY
     Route: 048
  5. REMERON [Concomitant]
     Active Substance: MIRTAZAPINE
     Dosage: 7.5 MG, 1X/DAY (NIGHTLY)
     Route: 048
  6. MYCOSTATIN [Concomitant]
     Active Substance: NYSTATIN
     Dosage: 5 ML, 3X/DAY
     Route: 048
  7. OCEAN SALINE NASAL SPRAY [Concomitant]
     Active Substance: SODIUM CHLORIDE
     Indication: NASAL DRYNESS
  8. MELOXICAM. [Concomitant]
     Active Substance: MELOXICAM
     Dosage: 7.5 MG, DAILY
     Route: 048
  9. MESALAMINE. [Concomitant]
     Active Substance: MESALAMINE
     Dosage: 1000 MG, 1X/DAY (NIGHTLY)
     Route: 054
  10. ALBUTEROL HFA [Concomitant]
     Active Substance: ALBUTEROL SULFATE
     Dosage: 2 DF, AS NEEDED (INTO THE LUNGS EVERY 4 HOURS)
  11. BENZONATATE. [Concomitant]
     Active Substance: BENZONATATE
     Dosage: 200 MG, 2X/DAY
     Route: 048
  12. OMEPRAZOLE DR [Concomitant]
     Active Substance: OMEPRAZOLE
     Indication: GASTROOESOPHAGEAL REFLUX DISEASE
     Dosage: 20 MG, UNK
     Dates: start: 20150828
  13. AMLACTIN [Concomitant]
     Active Substance: AMMONIUM LACTATE
     Dosage: UNK UNK, 2X/DAY (APPLY 1 APPLICATION TO AFFECTED AREA)
  14. DIFLUCAN [Concomitant]
     Active Substance: FLUCONAZOLE
     Dosage: 100 MG, DAILY (ONE PILL EACH DAY FOR 13 DAYS)
  15. LIDOCAIN [Concomitant]
     Active Substance: LIDOCAINE
     Dosage: 0.15 ML, 4X/DAY
  16. CLINDAMYCIN. [Concomitant]
     Active Substance: CLINDAMYCIN
     Dosage: 300 MG, 4X/DAY
     Route: 048
  17. OXY.IR [Concomitant]
     Indication: PAIN
     Dosage: 5 MG, AS NEEDED (EVERY 4 HOURS)
     Route: 048
  18. OCEAN SALINE NASAL SPRAY [Concomitant]
     Active Substance: SODIUM CHLORIDE
     Indication: NASAL CONGESTION
     Dosage: UNK, AS NEEDED (2 TIMES DAILY)
     Route: 045
  19. ENSURE [Concomitant]
     Active Substance: AMINO ACIDS\DEXTROSE\ELECTROLYTES NOS\SOYBEAN OIL\VITAMINS
     Dosage: UNK, 3X/DAY (ENSURE CLEAR LIQUID)
     Route: 048

REACTIONS (6)
  - Throat cancer [Not Recovered/Not Resolved]
  - Pneumonia [Unknown]
  - Malaise [Not Recovered/Not Resolved]
  - Hyperkeratosis [Recovering/Resolving]
  - Laryngeal cancer [Not Recovered/Not Resolved]
  - Procedural pain [Not Recovered/Not Resolved]

NARRATIVE: CASE EVENT DATE: 2015
